FAERS Safety Report 14065160 (Version 1)
Quarter: 2017Q4

REPORT INFORMATION
  Report Type: Spontaneous
  Country: US (occurrence: US)
  Receive Date: 20171009
  Receipt Date: 20171009
  Transmission Date: 20180321
  Serious: Yes (Death, Other)
  Sender: FDA-Public Use
  Company Number: US-BAYER-2017-189210

PATIENT
  Sex: Female
  Weight: 29.93 kg

DRUGS (1)
  1. ALEVE [Suspect]
     Active Substance: NAPROXEN SODIUM
     Indication: ABDOMINAL PAIN UPPER
     Dosage: UNK

REACTIONS (6)
  - Medication residue present [Unknown]
  - Weight decreased [None]
  - Abdominal pain upper [Fatal]
  - Feeding disorder [None]
  - Gastric cancer [Fatal]
  - Intra-abdominal haemorrhage [None]

NARRATIVE: CASE EVENT DATE: 2011
